FAERS Safety Report 6211820-5 (Version None)
Quarter: 2009Q2

REPORT INFORMATION
  Report Type: 
  Country: None (occurrence: None)
  Receive Date: 20090602
  Receipt Date: 20090522
  Transmission Date: 20091009
  Serious: Yes (Death, Life-Threatening, Hospitalization, Other)
  Sender: FDA-Public Use
  Company Number: US-MERCK-0707USA05058

PATIENT
  Age: 73 Year
  Sex: Female

DRUGS (21)
  1. FOSAMAX [Suspect]
     Indication: OSTEOPOROSIS
     Route: 048
     Dates: start: 20050101, end: 20060626
  2. FOSAMAX [Suspect]
     Route: 048
     Dates: start: 20020301, end: 20050101
  3. ZYRTEC [Concomitant]
     Route: 065
  4. PROTONIX [Concomitant]
     Route: 048
  5. ASPIRIN [Concomitant]
     Route: 065
  6. TOPROL-XL [Concomitant]
     Route: 048
  7. ZESTRIL [Concomitant]
     Route: 065
  8. EVISTA [Concomitant]
     Route: 065
  9. TOPAMAX [Concomitant]
     Route: 065
  10. OS-CAL D [Concomitant]
     Route: 065
  11. PREDNISONE [Concomitant]
     Route: 048
  12. LASIX [Concomitant]
     Route: 048
  13. LASIX [Concomitant]
     Route: 048
  14. SPIRONOLACTONE [Concomitant]
     Route: 048
     Dates: end: 20070617
  15. ASPIRIN [Concomitant]
     Route: 065
  16. EVISTA [Concomitant]
     Route: 065
  17. ZESTORETIC [Concomitant]
     Route: 065
  18. POTASSIUM CHLORIDE [Concomitant]
     Route: 065
  19. VITAMIN E [Concomitant]
     Route: 065
  20. TORSEMIDE [Concomitant]
     Route: 065
  21. RESTORIL [Concomitant]
     Route: 065

REACTIONS (65)
  - ABDOMINAL PAIN UPPER [None]
  - ACTINIC KERATOSIS [None]
  - ADVERSE DRUG REACTION [None]
  - ALLERGIC SINUSITIS [None]
  - AMMONIA INCREASED [None]
  - ANAEMIA [None]
  - AORTIC ANEURYSM [None]
  - AORTIC ANEURYSM RUPTURE [None]
  - AORTIC DILATATION [None]
  - AORTIC DISSECTION [None]
  - ARTERIAL FIBROSIS [None]
  - ASCITES [None]
  - ASTHENIA [None]
  - ATRIAL FIBRILLATION [None]
  - AUTOIMMUNE HEPATITIS [None]
  - CARDIAC FAILURE CONGESTIVE [None]
  - CARDIO-RESPIRATORY ARREST [None]
  - CARDIOMYOPATHY [None]
  - CHEST PAIN [None]
  - COAGULATION TIME PROLONGED [None]
  - COAGULOPATHY [None]
  - CONFUSIONAL STATE [None]
  - DEHYDRATION [None]
  - DIABETES MELLITUS [None]
  - DRUG HYPERSENSITIVITY [None]
  - DYSLIPIDAEMIA [None]
  - EYELID PTOSIS [None]
  - FALL [None]
  - GASTRIC ULCER [None]
  - GASTROINTESTINAL HAEMORRHAGE [None]
  - HEADACHE [None]
  - HEPATIC CIRRHOSIS [None]
  - HEPATIC FAILURE [None]
  - HEPATITIS [None]
  - HIATUS HERNIA [None]
  - HYPERGLYCAEMIA [None]
  - HYPERKALAEMIA [None]
  - HYPONATRAEMIA [None]
  - HYPOTENSION [None]
  - HYPOVOLAEMIA [None]
  - INSOMNIA [None]
  - INTERNATIONAL NORMALISED RATIO INCREASED [None]
  - IRON OVERLOAD [None]
  - JAUNDICE [None]
  - JOINT INJURY [None]
  - LIVER DISORDER [None]
  - MYOCARDIAL INFARCTION [None]
  - NAUSEA [None]
  - OESOPHAGEAL STENOSIS [None]
  - ORAL FUNGAL INFECTION [None]
  - OSTEONECROSIS [None]
  - RENAL FAILURE [None]
  - RENAL FAILURE CHRONIC [None]
  - RENAL IMPAIRMENT [None]
  - SINUSITIS [None]
  - SKIN CANCER [None]
  - SQUAMOUS CELL CARCINOMA [None]
  - SQUAMOUS CELL CARCINOMA OF SKIN [None]
  - SYNCOPE [None]
  - THERAPEUTIC AGENT TOXICITY [None]
  - THROMBOCYTOPENIA [None]
  - TRANSIENT ISCHAEMIC ATTACK [None]
  - URINARY TRACT DISORDER [None]
  - VASCULAR HEADACHE [None]
  - VENTRICULAR EXTRASYSTOLES [None]
